FAERS Safety Report 8625525-4 (Version None)
Quarter: 2012Q3

REPORT INFORMATION
  Report Type: 
  Country: None (occurrence: None)
  Receive Date: 20120827
  Receipt Date: 20120822
  Transmission Date: 20120928
  Serious: Yes (Other)
  Sender: FDA-Public Use
  Company Number: US-PFIZER INC-2012207510

PATIENT
  Age: 50 Year
  Sex: Male

DRUGS (3)
  1. HEPARIN SODIUM [Suspect]
     Indication: ANTICOAGULANT THERAPY
     Dosage: 80 UNITS/KG BODY WEIGHT BOLUS
     Route: 040
  2. COUMADIN [Concomitant]
     Dosage: UNK
  3. HEPARIN SODIUM [Suspect]
     Dosage: 18 UNITS/KG PER HOUR INFUSION
     Route: 041

REACTIONS (2)
  - GRAFT LOSS [None]
  - HEPARIN-INDUCED THROMBOCYTOPENIA [None]
